FAERS Safety Report 8993002 (Version 1)
Quarter: 2013Q1

REPORT INFORMATION
  Report Type: Spontaneous
  Country: US (occurrence: US)
  Receive Date: 20130102
  Receipt Date: 20130102
  Transmission Date: 20140127
  Serious: Yes (Other)
  Sender: FDA-Public Use
  Company Number: PHEH2012US025578

PATIENT
  Age: 8 Year
  Sex: Male

DRUGS (4)
  1. AFINITOR [Suspect]
     Dosage: 7.5 MG, DAILY
     Route: 048
     Dates: start: 20120126
  2. KEPPRA [Concomitant]
  3. IMITREX [Concomitant]
  4. DIASTAT [Concomitant]

REACTIONS (1)
  - Fibroma [Not Recovered/Not Resolved]
